FAERS Safety Report 16450854 (Version 2)
Quarter: 2019Q2

REPORT INFORMATION
  Report Type: Spontaneous
  Country: IT (occurrence: IT)
  Receive Date: 20190619
  Receipt Date: 20190626
  Transmission Date: 20190711
  Serious: Yes (Hospitalization)
  Sender: FDA-Public Use
  Company Number: IT-PFIZER INC-2019255656

PATIENT
  Age: 58 Year
  Sex: Female
  Weight: 63 kg

DRUGS (8)
  1. SEVOFLURANE. [Suspect]
     Active Substance: SEVOFLURANE
     Indication: MAINTENANCE OF ANAESTHESIA
     Dosage: UNK
     Route: 065
  2. TRIAZOLAM. [Concomitant]
     Active Substance: TRIAZOLAM
     Indication: DEPRESSION
     Dosage: 0.25 MG, ONCE DAILY
     Route: 065
  3. FENTANYL CITRATE. [Suspect]
     Active Substance: FENTANYL CITRATE
     Indication: GENERAL ANAESTHESIA
     Dosage: 2 UG/KG, UNK
     Route: 042
  4. FENTANYL CITRATE. [Suspect]
     Active Substance: FENTANYL CITRATE
     Indication: MAINTENANCE OF ANAESTHESIA
  5. PROPOFOL. [Suspect]
     Active Substance: PROPOFOL
     Indication: GENERAL ANAESTHESIA
     Dosage: 2 MG/KG, UNK
     Route: 042
  6. ROCURONIUM [Suspect]
     Active Substance: ROCURONIUM BROMIDE
     Indication: GENERAL ANAESTHESIA
     Dosage: 0.6 MG/KG, UNK
     Route: 042
  7. BACLOFEN. [Concomitant]
     Active Substance: BACLOFEN
     Indication: MUSCLE SPASTICITY
     Dosage: 25 MG, THRICE DAILY
     Route: 065
  8. ETORICOXIB. [Concomitant]
     Active Substance: ETORICOXIB
     Indication: PAIN
     Dosage: 60 MG, ONCE DAILY
     Route: 065

REACTIONS (1)
  - Postoperative delirium [Recovered/Resolved]
